FAERS Safety Report 5629556-8 (Version None)
Quarter: 2008Q1

REPORT INFORMATION
  Report Type: 
  Country: None (occurrence: None)
  Receive Date: 20080213
  Receipt Date: 20080213
  Transmission Date: 20080703
  Serious: Yes (Death, Life-Threatening, Hospitalization, Disabling, Other)
  Sender: FDA-Public Use
  Company Number: None

PATIENT
  Age: 61 Year
  Sex: Male
  Weight: 71 kg

DRUGS (1)
  1. PLAVIX [Suspect]
     Indication: THROMBOSIS PROPHYLAXIS
     Dates: start: 20080110

REACTIONS (6)
  - CARDIO-RESPIRATORY ARREST [None]
  - DRUG INEFFECTIVE [None]
  - EJECTION FRACTION DECREASED [None]
  - STENT OCCLUSION [None]
  - THROMBOSIS IN DEVICE [None]
  - VENTRICULAR TACHYCARDIA [None]
